FAERS Safety Report 10619361 (Version 4)
Quarter: 2015Q4

REPORT INFORMATION
  Report Type: Report from Study
  Country: US (occurrence: US)
  Receive Date: 20141202
  Receipt Date: 20151113
  Transmission Date: 20160304
  Serious: Yes (Other)
  Sender: FDA-Public Use
  Company Number: US-SA-2014SA093378

PATIENT
  Age: 42 Year
  Sex: Male

DRUGS (1)
  1. AUBAGIO [Suspect]
     Active Substance: TERIFLUNOMIDE
     Indication: MULTIPLE SCLEROSIS
     Route: 048
     Dates: start: 20130728

REACTIONS (10)
  - Neck pain [Unknown]
  - Central nervous system lesion [Not Recovered/Not Resolved]
  - Asthenia [Not Recovered/Not Resolved]
  - Vision blurred [Not Recovered/Not Resolved]
  - Musculoskeletal pain [Unknown]
  - Nuclear magnetic resonance imaging abnormal [Unknown]
  - Musculoskeletal stiffness [Unknown]
  - Clumsiness [Not Recovered/Not Resolved]
  - Paraesthesia [Unknown]
  - Hypoaesthesia [Not Recovered/Not Resolved]

NARRATIVE: CASE EVENT DATE: 2014
